FAERS Safety Report 14598796 (Version 3)
Quarter: 2018Q3

REPORT INFORMATION
  Report Type: Spontaneous
  Country: DE (occurrence: DE)
  Receive Date: 20180305
  Receipt Date: 20180918
  Transmission Date: 20181010
  Serious: Yes (Life-Threatening, Hospitalization, Other)
  Sender: FDA-Public Use
  Company Number: DE-BRACCO-2018DE00004

PATIENT
  Age: 82 Year
  Sex: Female

DRUGS (11)
  1. KABIVEN [Concomitant]
     Active Substance: AMINO ACIDS\ANHYDROUS DEXTROSE\CALCIUM CHLORIDE\MAGNESIUM SULFATE HEPTAHYDRATE\POTASSIUM CHLORIDE\SODIUM ACETATE\SODIUM GLYCEROPHOSPHATE ANHYDROUS\SOYBEAN OIL
     Dosage: UNK
  2. METOHEXAL                          /00376902/ [Concomitant]
     Active Substance: METOPROLOL SUCCINATE
     Dosage: 47.5 MG, BID (MORNING AND EVENING)
  3. NOVALGIN (METAMIZOLE SODIUM) [Concomitant]
     Active Substance: METAMIZOLE SODIUM
     Dosage: UNK
  4. PROHANCE [Suspect]
     Active Substance: GADOTERIDOL
     Indication: NUCLEAR MAGNETIC RESONANCE IMAGING BRAIN
     Dosage: 14 ML, SINGLE, FLOW RATE 1 ML/S
     Route: 042
     Dates: start: 20171201, end: 20171201
  5. MOVICOL [Concomitant]
     Active Substance: POLYETHYLENE GLYCOL 3350\POTASSIUM CHLORIDE\SODIUM BICARBONATE\SODIUM CHLORIDE
     Dosage: 1 DF, TID
  6. TARGIN [Concomitant]
     Active Substance: NALOXONE HYDROCHLORIDE\OXYCODONE HYDROCHLORIDE
     Dosage: 10 MG, UNK
  7. AMARYL [Concomitant]
     Active Substance: GLIMEPIRIDE
     Dosage: 1 MG, QD (IN THE MORNING)
  8. PREGABADOR [Concomitant]
     Active Substance: PREGABALIN
     Dosage: 150 MG, QD (IN THE MORNING)
  9. KALINOR RETARD P [Concomitant]
     Active Substance: POTASSIUM CHLORIDE
     Dosage: UNK
  10. DELIX                              /00885601/ [Concomitant]
     Active Substance: RAMIPRIL
     Dosage: 5 MG, QD (IN THE MORNING)
  11. PRAVASTATIN. [Concomitant]
     Active Substance: PRAVASTATIN
     Dosage: 20 MG, QD (IN THE EVENING)

REACTIONS (5)
  - Pneumonia [Unknown]
  - Acute kidney injury [Unknown]
  - Circulatory collapse [Recovered/Resolved]
  - Nausea [Recovered/Resolved]
  - Anaphylactic shock [Recovered/Resolved]

NARRATIVE: CASE EVENT DATE: 201712
